FAERS Safety Report 9796883 (Version 3)
Quarter: 2014Q1

REPORT INFORMATION
  Report Type: Spontaneous
  Country: ES (occurrence: ES)
  Receive Date: 20140104
  Receipt Date: 20140108
  Transmission Date: 20141002
  Serious: Yes (Other)
  Sender: FDA-Public Use
  Company Number: ES-JNJFOC-20131211599

PATIENT
  Age: 16 Year
  Sex: Male

DRUGS (6)
  1. IBUPROFEN [Suspect]
     Route: 065
  2. IBUPROFEN [Suspect]
     Indication: TOOTH EXTRACTION
     Route: 065
  3. METAMIZOLE [Suspect]
     Indication: TOOTH EXTRACTION
  4. OMEPRAZOLE [Suspect]
     Indication: TOOTH EXTRACTION
  5. CLINDAMYCIN HCL [Suspect]
     Indication: TOOTH EXTRACTION
  6. CLOXACILLIN [Suspect]
     Indication: PRODUCT USED FOR UNKNOWN INDICATION
     Route: 065

REACTIONS (1)
  - Rash macular [Unknown]
